FAERS Safety Report 5613325-9 (Version None)
Quarter: 2008Q1

REPORT INFORMATION
  Report Type: 
  Country: None (occurrence: None)
  Receive Date: 20080130
  Receipt Date: 20080124
  Transmission Date: 20080703
  Serious: Yes (Other)
  Sender: FDA-Public Use
  Company Number: GXKR2008DE01045

PATIENT
  Age: 70 Year
  Sex: Female

DRUGS (2)
  1. LORANO (NGX) (LORATADINE) TABLET [Suspect]
     Dosage: ORAL
     Route: 048
  2. ATACAND [Concomitant]

REACTIONS (1)
  - ELECTROCARDIOGRAM QT PROLONGED [None]
